FAERS Safety Report 8015760-0 (Version None)
Quarter: 2011Q4

REPORT INFORMATION
  Report Type: 
  Country: None (occurrence: None)
  Receive Date: 20111230
  Receipt Date: 20111202
  Transmission Date: 20120403
  Serious: Yes (Hospitalization)
  Sender: FDA-Public Use
  Company Number: CN-NOVOPROD-340764

PATIENT

DRUGS (2)
  1. NOVOMIX 30 FLEXPEN [Suspect]
     Indication: PRODUCT USED FOR UNKNOWN INDICATION
     Dosage: 30 U, QD
     Route: 058
     Dates: end: 20111121
  2. NOVOMIX 30 FLEXPEN [Suspect]
     Dosage: UNK
     Route: 058

REACTIONS (2)
  - DEVICE MALFUNCTION [None]
  - SKIN MASS [None]
